FAERS Safety Report 9500377 (Version 2)
Quarter: 2013Q3

REPORT INFORMATION
  Report Type: Spontaneous
  Country: US (occurrence: None)
  Receive Date: 20130903
  Receipt Date: 20130925
  Transmission Date: 20140515
  Serious: Yes (Hospitalization)
  Sender: FDA-Public Use
  Company Number: OTH-PAT-2013016

PATIENT
  Age: 6 Year
  Sex: Female

DRUGS (5)
  1. CYSTADANE [Suspect]
     Indication: AMINO ACID METABOLISM DISORDER
     Dates: start: 20080116
  2. CARNITOR - LEVOCARNITINE [Concomitant]
  3. HYDROXOCOBALAMIN [Concomitant]
  4. L-VALINE [Concomitant]
  5. ZOFRAN - ONDANSETRON [Concomitant]

REACTIONS (14)
  - Pyrexia [None]
  - Urine output decreased [None]
  - Dehydration [None]
  - Pyrexia [None]
  - Overdose [None]
  - Diarrhoea [None]
  - Abdominal pain [None]
  - Nasal congestion [None]
  - Vomiting [None]
  - Hypophagia [None]
  - Cough [None]
  - Productive cough [None]
  - Rhinorrhoea [None]
  - Abnormal faeces [None]
